FAERS Safety Report 8507910-4 (Version None)
Quarter: 2012Q3

REPORT INFORMATION
  Report Type: 
  Country: None (occurrence: None)
  Receive Date: 20120713
  Receipt Date: 20120704
  Transmission Date: 20120928
  Serious: Yes (Hospitalization)
  Sender: FDA-Public Use
  Company Number: BR-US-EMD SERONO, INC.-7145321

PATIENT
  Sex: Female

DRUGS (5)
  1. OXICARBAMAZEPINE (OXCARBAZEPINE) [Concomitant]
     Indication: PRODUCT USED FOR UNKNOWN INDICATION
     Dates: start: 20110201
  2. ISONIAZID [Concomitant]
     Indication: TUBERCULOSIS
     Dates: start: 20110201
  3. VENLAFAXINE [Concomitant]
     Indication: PRODUCT USED FOR UNKNOWN INDICATION
     Dates: start: 20110201
  4. REBIF [Suspect]
     Indication: RELAPSING-REMITTING MULTIPLE SCLEROSIS
  5. TANDRILAX [Concomitant]
     Indication: PRODUCT USED FOR UNKNOWN INDICATION
     Dates: start: 20110201

REACTIONS (10)
  - LUNG NEOPLASM [None]
  - DIPLOPIA [None]
  - FAECAL INCONTINENCE [None]
  - DYSGRAPHIA [None]
  - BALANCE DISORDER [None]
  - HEPATIC NEOPLASM [None]
  - URINARY INCONTINENCE [None]
  - CENTRAL NERVOUS SYSTEM LESION [None]
  - INFECTION [None]
  - HYPOAESTHESIA [None]
